FAERS Safety Report 8372311-9 (Version None)
Quarter: 2012Q2

REPORT INFORMATION
  Report Type: 
  Country: None (occurrence: None)
  Receive Date: 20120521
  Receipt Date: 20120515
  Transmission Date: 20120825
  Serious: Yes (Other)
  Sender: FDA-Public Use
  Company Number: US-PFIZER INC-2012118092

PATIENT
  Sex: Male
  Weight: 87.2 kg

DRUGS (8)
  1. AMIODARONE HCL [Suspect]
     Dosage: UNK
  2. MULTAQ [Suspect]
     Indication: ATRIAL FIBRILLATION
     Dosage: 400 MG, 2X/DAY
     Route: 048
     Dates: start: 20110117, end: 20120225
  3. PRADAXA [Concomitant]
     Dosage: UNK
     Dates: start: 20110117
  4. METOPROLOL SUCCINATE [Concomitant]
     Dosage: UNK
     Dates: end: 20120312
  5. ZETIA [Concomitant]
     Dosage: UNK
  6. CARTIA XT [Concomitant]
     Dosage: UNK
     Dates: end: 20120312
  7. CRESTOR [Concomitant]
     Dosage: UNK
     Dates: end: 20120312
  8. ASPIRIN [Concomitant]
     Dosage: UNK

REACTIONS (3)
  - INTERSTITIAL LUNG DISEASE [None]
  - HYPOXIA [None]
  - DYSPNOEA [None]
